FAERS Safety Report 25524685 (Version 1)
Quarter: 2025Q3

REPORT INFORMATION
  Report Type: Spontaneous
  Country: US (occurrence: None)
  Receive Date: 20250704
  Receipt Date: 20250704
  Transmission Date: 20251020
  Serious: Yes (Hospitalization)
  Sender: FDA-CTU
  Company Number: None

PATIENT
  Age: 65 Year
  Sex: Female
  Weight: 62.3 kg

DRUGS (3)
  1. FLUOROURACIL [Suspect]
     Active Substance: FLUOROURACIL
     Dates: end: 20250613
  2. ATORVASTATIN [Concomitant]
     Active Substance: ATORVASTATIN
  3. METFORMIN [Concomitant]
     Active Substance: METFORMIN HYDROCHLORIDE

REACTIONS (8)
  - Hydronephrosis [None]
  - Stent placement [None]
  - Urosepsis [None]
  - Food intolerance [None]
  - Vomiting [None]
  - Pseudomonas test positive [None]
  - Pancytopenia [None]
  - Neutropenia [None]

NARRATIVE: CASE EVENT DATE: 20250606
